FAERS Safety Report 11999050 (Version 1)
Quarter: 2016Q1

REPORT INFORMATION
  Report Type: Spontaneous
  Country: US (occurrence: None)
  Receive Date: 20160203
  Receipt Date: 20160203
  Transmission Date: 20160526
  Serious: Yes (Disabling)
  Sender: FDA-Public Use
  Company Number: None

PATIENT
  Age: 68 Year
  Sex: Female
  Weight: 74.39 kg

DRUGS (7)
  1. CIPROFLOXACIN 500MG TABLETS COBALT [Suspect]
     Active Substance: CIPROFLOXACIN
     Indication: URINARY TRACT INFECTION
     Dosage: 6 PILLS, 2 A DAY, MOUTH
     Route: 048
     Dates: start: 20150622, end: 20150625
  2. METFORMIN [Concomitant]
     Active Substance: METFORMIN HYDROCHLORIDE
  3. MULTI VITAMIN [Concomitant]
     Active Substance: VITAMINS
  4. CLOPIDOGREL [Concomitant]
     Active Substance: CLOPIDOGREL BISULFATE
  5. BISULFATE [Concomitant]
  6. CENTRUM VITAMINS LIQUID [Concomitant]
     Active Substance: VITAMINS
  7. VALSARTAN AND HYDROCHLOROTHIAZIDE [Concomitant]
     Active Substance: HYDROCHLOROTHIAZIDE\VALSARTAN

REACTIONS (5)
  - Pain in extremity [None]
  - Joint swelling [None]
  - Arthralgia [None]
  - Peripheral swelling [None]
  - Tendon disorder [None]

NARRATIVE: CASE EVENT DATE: 20150913
